FAERS Safety Report 5268400-8 (Version None)
Quarter: 2007Q1

REPORT INFORMATION
  Report Type: 
  Country: None (occurrence: None)
  Receive Date: 20070315
  Receipt Date: 20070315
  Transmission Date: 20070707
  Serious: Yes (Other)
  Sender: FDA-Public Use
  Company Number: None

PATIENT
  Age: 35 Year
  Sex: Male
  Weight: 86.1834 kg

DRUGS (4)
  1. METHADONE HCL [Suspect]
     Indication: ANXIETY
     Dosage: 40MG EVERY 6 HOURS PO
     Route: 048
     Dates: start: 20070101, end: 20070314
  2. METHADONE HCL [Suspect]
     Indication: ARTHRALGIA
     Dosage: 40MG EVERY 6 HOURS PO
     Route: 048
     Dates: start: 20070101, end: 20070314
  3. ALPRAZOLAM [Suspect]
     Indication: PANIC ATTACK
     Dosage: 2MG BID PO
     Route: 048
     Dates: start: 20070101, end: 20070314
  4. XANAX [Concomitant]

REACTIONS (2)
  - AMNESIA [None]
  - MIDDLE INSOMNIA [None]
